FAERS Safety Report 21504325 (Version 2)
Quarter: 2023Q2

REPORT INFORMATION
  Report Type: Report from Study
  Country: BE (occurrence: BE)
  Receive Date: 20221025
  Receipt Date: 20230428
  Transmission Date: 20230721
  Serious: Yes (Death, Hospitalization)
  Sender: FDA-Public Use
  Company Number: BE-Vifor Pharma-VIT-2022-06644

PATIENT
  Sex: Female
  Weight: 95.2 kg

DRUGS (23)
  1. DIFELIKEFALIN [Suspect]
     Active Substance: DIFELIKEFALIN
     Indication: Uraemic pruritus
     Dosage: 0.05 MG/ML (55 MCG,3 IN 1 WK)
     Route: 042
     Dates: start: 20220907, end: 20220921
  2. GABAPENTIN [Concomitant]
     Active Substance: GABAPENTIN
     Indication: Pruritus
     Dosage: 200 MILLIGRAM
     Route: 048
     Dates: start: 20220228, end: 20221104
  3. PREGABALIN [Concomitant]
     Active Substance: PREGABALIN
     Indication: Polyneuropathy
     Dosage: 75 MILLIGRAM
     Dates: start: 20190823, end: 20220921
  4. BISOPROLOL [Concomitant]
     Active Substance: BISOPROLOL
     Indication: Hypertension
     Dosage: COMP 1 X 2.5MG (2.5 MG)
  5. LEVOTHYROXINE SODIUM [Concomitant]
     Active Substance: LEVOTHYROXINE SODIUM
     Indication: Hyperthyroidism
     Dosage: COMPOUND 1 X 150 MICROGRAMS (150 MCG)
     Route: 048
     Dates: start: 20220427, end: 20221104
  6. LEVOCETIRIZINE [Concomitant]
     Active Substance: LEVOCETIRIZINE
     Indication: Pruritus
     Dosage: COMPOUND 1X 5 MILLIGRAMS (5 MG)
     Route: 048
     Dates: start: 20220314, end: 20221104
  7. LANTUS SOLOSTAR [Concomitant]
     Active Substance: INSULIN GLARGINE
     Indication: Diabetes mellitus
     Dosage: 14 UNITS. 1X3ML 100U/ML
     Dates: start: 20181022
  8. NOVORAPID [Concomitant]
     Active Substance: INSULIN ASPART
     Indication: Diabetes mellitus
     Dosage: 1X3ML 100U/ML
     Dates: start: 20220214
  9. RENVELA [Concomitant]
     Active Substance: SEVELAMER CARBONATE
     Indication: Hyperphosphataemia
     Dosage: COMPOUND 1 X 800 MILLIGRAMS (800 MG)
     Dates: start: 20220923
  10. BUMETANIDE [Concomitant]
     Active Substance: BUMETANIDE
     Indication: Hypervolaemia
     Dosage: COMPOUND 2X 5 MILLIGRAMS. COMP 1 X 5 MG. (5 MG)
     Dates: start: 20191113
  11. LIPITOR [Concomitant]
     Active Substance: ATORVASTATIN CALCIUM
     Indication: Hypercholesterolaemia
     Dosage: COMPOUND 1X 80 MILLIGRAMS. COMP 1 X 20 MG.
     Dates: start: 20161107
  12. SINTROM [Concomitant]
     Active Substance: ACENOCOUMAROL
     Indication: Cerebrovascular accident
     Dosage: COMP 1 X 1 MG (1 MG)
     Route: 048
     Dates: start: 20221014, end: 20221104
  13. KEPPRA [Concomitant]
     Active Substance: LEVETIRACETAM
     Indication: Epilepsy
     Dosage: 500 MG COMPOUND 1 X 500 MG (500 MG)
     Route: 048
     Dates: start: 20210315, end: 20221104
  14. LYRICA [Concomitant]
     Active Substance: PREGABALIN
     Dosage: 1 X 75 MG (75 MG)
     Dates: end: 20220923
  15. ACETAMINOPHEN [Concomitant]
     Active Substance: ACETAMINOPHEN
     Route: 048
  16. XALATAN [Concomitant]
     Active Substance: LATANOPROST
  17. BISOPROLOL FUMARATE [Concomitant]
     Active Substance: BISOPROLOL FUMARATE
     Dosage: COMP 1 X 2.5MG
  18. GABAPENTINE EG [Concomitant]
     Dosage: 1 X 100 MG (100 MG)
     Dates: end: 20220923
  19. LEVOCETIRIZINE SANDOZ [Concomitant]
     Dosage: 1X5MG (5 MG)
  20. NATRIUM BICARBONAT [Concomitant]
     Route: 048
  21. EUCERIN [UREA] [Concomitant]
     Dosage: COMPL. REPAIR LOTION 10% UREA
  22. PANTOPRAZOLE SODIUM [Concomitant]
     Active Substance: PANTOPRAZOLE SODIUM
     Indication: Dyspepsia
     Dosage: COMP 1X40MG (40 MG)
  23. FENOTEROL HYDROBROMIDE [Concomitant]
     Active Substance: FENOTEROL HYDROBROMIDE
     Dosage: AERO DOS 200

REACTIONS (10)
  - Death [Fatal]
  - Peripheral ischaemia [Unknown]
  - Pneumonia [Unknown]
  - C-reactive protein increased [Unknown]
  - Contusion [Unknown]
  - Cardio-respiratory arrest [Unknown]
  - Asphyxia [Unknown]
  - Dysstasia [Recovered/Resolved]
  - Fall [Recovered/Resolved]
  - Somnolence [Recovered/Resolved]

NARRATIVE: CASE EVENT DATE: 20220101
